FAERS Safety Report 9705899 (Version 2)
Quarter: 2013Q4

REPORT INFORMATION
  Report Type: Spontaneous
  Country: US (occurrence: US)
  Receive Date: 20131122
  Receipt Date: 20131122
  Transmission Date: 20140711
  Serious: No
  Sender: FDA-Public Use
  Company Number: US-GALDERMA-US13000952

PATIENT
  Sex: Female

DRUGS (4)
  1. CLOBEX (CLOBETASOL PROPIONATE) SPRAY, 0.05% [Suspect]
     Indication: PRURITUS
     Route: 061
     Dates: start: 20130319, end: 20130326
  2. CLOBEX (CLOBETASOL PROPIONATE) SPRAY, 0.05% [Suspect]
     Indication: RASH
  3. BENADRYL [Concomitant]
     Indication: PRURITUS
     Route: 048
  4. ZYRTEC [Concomitant]
     Indication: PRURITUS
     Route: 048

REACTIONS (2)
  - Drug ineffective for unapproved indication [Recovered/Resolved]
  - Off label use [Recovered/Resolved]
